FAERS Safety Report 8828372 (Version 1)
Quarter: 2012Q4

REPORT INFORMATION
  Report Type: 
  Country: FR (occurrence: FR)
  Receive Date: 20121005
  Receipt Date: 20121005
  Transmission Date: 20130627
  Serious: Yes (Other)
  Sender: FDA-Public Use
  Company Number: FR-ELI_LILLY_AND_COMPANY-FR201210000424

PATIENT
  Sex: Female

DRUGS (1)
  1. EFIENT [Suspect]
     Indication: ANGIOPLASTY
     Dosage: 10 mg, UNK
     Route: 048

REACTIONS (1)
  - Coronary artery restenosis [Unknown]
